FAERS Safety Report 9393551 (Version 1)
Quarter: 2013Q3

REPORT INFORMATION
  Report Type: Spontaneous
  Country: None (occurrence: None)
  Receive Date: 20130705
  Receipt Date: 20130705
  Transmission Date: 20140515
  Serious: Yes (Hospitalization)
  Sender: FDA-Public Use
  Company Number: 2013/137

PATIENT
  Age: 79 Year
  Sex: Male
  Weight: 81 kg

DRUGS (12)
  1. TERBINAFINE [Suspect]
     Indication: ONYCHOMYCOSIS
     Route: 048
     Dates: start: 20130307, end: 20130605
  2. BISOPROLOL [Concomitant]
  3. CLOPIDOGREL [Concomitant]
  4. FOLIC ACID [Concomitant]
  5. FUROSEMIDE [Concomitant]
  6. CEPHALEXIN [Concomitant]
  7. SIMVASTATIN [Concomitant]
  8. THIAMINE [Concomitant]
  9. TRIMETHOPRIM [Concomitant]
  10. VITAMIN B COMPLEX STRONG [Concomitant]
  11. SENNA [Concomitant]
  12. MOVICOL [Concomitant]

REACTIONS (8)
  - Lethargy [None]
  - General physical health deterioration [None]
  - Urinary retention [None]
  - Alanine aminotransferase increased [None]
  - Blood alkaline phosphatase increased [None]
  - Blood bilirubin increased [None]
  - Drug dispensing error [None]
  - Incorrect drug administration duration [None]
